FAERS Safety Report 18384188 (Version 1)
Quarter: 2020Q4

REPORT INFORMATION
  Report Type: Spontaneous
  Country: US (occurrence: US)
  Receive Date: 20201014
  Receipt Date: 20201014
  Transmission Date: 20210114
  Serious: No
  Sender: FDA-Public Use
  Company Number: US-INTRA-CELLULAR THERAPIES, INC.-2020ICT00089

PATIENT

DRUGS (2)
  1. CAPLYTA [Suspect]
     Active Substance: LUMATEPERONE
     Dosage: UNK
  2. HALDOL [Suspect]
     Active Substance: HALOPERIDOL
     Route: 048

REACTIONS (2)
  - Paranoia [Unknown]
  - Irritability [Unknown]
